FAERS Safety Report 5249882-4 (Version None)
Quarter: 2007Q1

REPORT INFORMATION
  Report Type: 
  Country: None (occurrence: None)
  Receive Date: 20061201
  Receipt Date: 20060821
  Transmission Date: 20070707
  Serious: No
  Sender: FDA-Public Use
  Company Number: 2006PV019854

PATIENT
  Age: 34 Year
  Sex: Male
  Weight: 102.0593 kg

DRUGS (6)
  1. BYETTA [Suspect]
     Indication: DIABETES MELLITUS NON-INSULIN-DEPENDENT
     Dosage: 10 MCG UNK SC ; 5 MCG UNK SC
     Route: 058
     Dates: end: 20060711
  2. METFORMIN HCL [Suspect]
     Indication: DIABETES MELLITUS NON-INSULIN-DEPENDENT
     Dates: end: 20060711
  3. CYMBALTA [Concomitant]
  4. BLOOD PRESSURE MEDICATION NOS [Concomitant]
  5. ROCEPHIN [Concomitant]
  6. GLUCOTROL XL [Concomitant]

REACTIONS (8)
  - BLOOD GLUCOSE INCREASED [None]
  - DEHYDRATION [None]
  - DIABETIC KETOACIDOSIS [None]
  - HEART RATE INCREASED [None]
  - NAUSEA [None]
  - PALLOR [None]
  - PROSTATITIS [None]
  - VERTIGO [None]
